FAERS Safety Report 4391073-3 (Version None)
Quarter: 2004Q3

REPORT INFORMATION
  Report Type: 
  Country: None (occurrence: None)
  Receive Date: 20040701
  Receipt Date: 20040701
  Transmission Date: 20050211
  Serious: No
  Sender: FDA-Public Use
  Company Number: None

PATIENT
  Age: 68 Year
  Sex: Male
  Weight: 77.1 kg

DRUGS (1)
  1. GEMCITABINE [Suspect]
     Indication: PANCREATIC CARCINOMA
     Dosage: 1600 MG IV WEEKLY X2 THEN /.WK OFF
     Route: 042
     Dates: start: 20040607

REACTIONS (3)
  - NEUTROPENIA [None]
  - PULMONARY EMBOLISM [None]
  - PYREXIA [None]
